FAERS Safety Report 6368571-6 (Version None)
Quarter: 2009Q3

REPORT INFORMATION
  Report Type: 
  Country: None (occurrence: None)
  Receive Date: 20090922
  Receipt Date: 20090220
  Transmission Date: 20100115
  Serious: No
  Sender: FDA-Public Use
  Company Number: US-BRISTOL-MYERS SQUIBB COMPANY-14494264

PATIENT
  Age: 6 Year
  Sex: Male

DRUGS (1)
  1. BUSPAR [Suspect]
     Indication: GENERALISED ANXIETY DISORDER
     Dosage: 1 DOSAGE FORM = 25MG/5ML PO TID, DOSE-75MG/DAY(25MG TID)
     Route: 048
     Dates: start: 20081021, end: 20090202

REACTIONS (4)
  - ABDOMINAL DISCOMFORT [None]
  - ANAEMIA [None]
  - MEDICATION ERROR [None]
  - OVERDOSE [None]
